FAERS Safety Report 12977199 (Version 2)
Quarter: 2016Q4

REPORT INFORMATION
  Report Type: Spontaneous
  Country: IT (occurrence: IT)
  Receive Date: 20161128
  Receipt Date: 20161205
  Transmission Date: 20170207
  Serious: Yes (Death)
  Sender: FDA-Public Use
  Company Number: IT-ROCHE-1859628

PATIENT
  Age: 74 Year
  Sex: Female
  Weight: 58 kg

DRUGS (5)
  1. BISOPROLOLO [Concomitant]
     Active Substance: BISOPROLOL FUMARATE
     Indication: PRODUCT USED FOR UNKNOWN INDICATION
  2. CARDIOASPIRIN [Concomitant]
     Active Substance: ASPIRIN
     Indication: PRODUCT USED FOR UNKNOWN INDICATION
  3. ESCLIM [Concomitant]
     Active Substance: ESTRADIOL
     Indication: PRODUCT USED FOR UNKNOWN INDICATION
     Dosage: 50MG TOTAL, OF WHICH 5MG IN BOLUS+ 45 MG VIA SYRINGE PUMP IN 1 HOUR
     Route: 065
  4. CONVERTEN [Concomitant]
     Indication: PRODUCT USED FOR UNKNOWN INDICATION
  5. ACTILYSE [Suspect]
     Active Substance: ALTEPLASE
     Indication: THROMBOLYSIS
     Dosage: 5MG IN BOLUS+ 45 MG VIA SYRINGE PUMP
     Route: 065
     Dates: start: 20161118

REACTIONS (4)
  - Blood pressure increased [Fatal]
  - Cerebral haemorrhage [Fatal]
  - Haemorrhage [Fatal]
  - Neurological decompensation [Fatal]

NARRATIVE: CASE EVENT DATE: 20161118
